FAERS Safety Report 21206711 (Version 1)
Quarter: 2022Q3

REPORT INFORMATION
  Report Type: Spontaneous
  Country: US (occurrence: None)
  Receive Date: 20220811
  Receipt Date: 20220811
  Transmission Date: 20221027
  Serious: No
  Sender: FDA-Public Use
  Company Number: None

PATIENT
  Age: 26 Year
  Sex: Female
  Weight: 58.5 kg

DRUGS (9)
  1. MAGNESIUM CITRATE ORAL CHERRY FLAVOR [Suspect]
     Active Substance: MAGNESIUM CITRATE
     Indication: Postoperative care
     Dates: start: 20220704, end: 20220720
  2. MAGNESIUM CITRATE ORAL CHERRY FLAVOR [Suspect]
     Active Substance: MAGNESIUM CITRATE
     Indication: Bowel movement irregularity
  3. MAGNESIUM CITRATE LEMON [Suspect]
     Active Substance: MAGNESIUM CITRATE
  4. MAGNESIUM CITRATE LEMON [Suspect]
     Active Substance: MAGNESIUM CITRATE
  5. DILTIAZEM [Concomitant]
  6. FOLIC ACID [Concomitant]
     Active Substance: FOLIC ACID
  7. VITAMIN B12 [Concomitant]
     Active Substance: CYANOCOBALAMIN
  8. SPRINTEC [Concomitant]
     Active Substance: ETHINYL ESTRADIOL\NORGESTIMATE
  9. albuterol inhaler [Concomitant]

REACTIONS (8)
  - Recalled product administered [None]
  - Abdominal pain upper [None]
  - Frequent bowel movements [None]
  - Intestinal obstruction [None]
  - Nausea [None]
  - Vomiting [None]
  - Pyrexia [None]
  - Abdominal distension [None]

NARRATIVE: CASE EVENT DATE: 20220704
